FAERS Safety Report 21709113 (Version 4)
Quarter: 2023Q4

REPORT INFORMATION
  Report Type: Report from Study
  Country: US (occurrence: US)
  Receive Date: 20221210
  Receipt Date: 20231025
  Transmission Date: 20240109
  Serious: Yes (Other)
  Sender: FDA-Public Use
  Company Number: US-TAKEDA-2022TUS067479

PATIENT
  Sex: Female
  Weight: 85 kg

DRUGS (22)
  1. TEDUGLUTIDE [Suspect]
     Active Substance: TEDUGLUTIDE
     Indication: Post procedural complication
     Dosage: 4.25 MILLIGRAM, QD
     Route: 058
  2. TEDUGLUTIDE [Suspect]
     Active Substance: TEDUGLUTIDE
     Indication: Post procedural complication
     Dosage: 4.25 MILLIGRAM, QD
     Route: 058
  3. TEDUGLUTIDE [Suspect]
     Active Substance: TEDUGLUTIDE
     Indication: Post procedural complication
     Dosage: 4.25 MILLIGRAM, QD
     Route: 058
  4. TEDUGLUTIDE [Suspect]
     Active Substance: TEDUGLUTIDE
     Indication: Post procedural complication
     Dosage: 4.25 MILLIGRAM, QD
     Route: 058
  5. TEDUGLUTIDE [Suspect]
     Active Substance: TEDUGLUTIDE
     Indication: Gastrointestinal disorder
     Dosage: 3.34 MILLIGRAM, QD
     Route: 058
  6. TEDUGLUTIDE [Suspect]
     Active Substance: TEDUGLUTIDE
     Indication: Gastrointestinal disorder
     Dosage: 3.34 MILLIGRAM, QD
     Route: 058
  7. TEDUGLUTIDE [Suspect]
     Active Substance: TEDUGLUTIDE
     Indication: Gastrointestinal disorder
     Dosage: 3.34 MILLIGRAM, QD
     Route: 058
  8. TEDUGLUTIDE [Suspect]
     Active Substance: TEDUGLUTIDE
     Indication: Gastrointestinal disorder
     Dosage: 3.34 MILLIGRAM, QD
     Route: 058
  9. TEDUGLUTIDE [Suspect]
     Active Substance: TEDUGLUTIDE
     Dosage: 3.34 MILLIGRAM, QD
     Route: 058
  10. TEDUGLUTIDE [Suspect]
     Active Substance: TEDUGLUTIDE
     Dosage: 3.34 MILLIGRAM, QD
     Route: 058
  11. TEDUGLUTIDE [Suspect]
     Active Substance: TEDUGLUTIDE
     Dosage: 3.34 MILLIGRAM, QD
     Route: 058
  12. TEDUGLUTIDE [Suspect]
     Active Substance: TEDUGLUTIDE
     Dosage: 3.34 MILLIGRAM, QD
     Route: 058
  13. MICAFUNGIN [Concomitant]
     Active Substance: MICAFUNGIN SODIUM
     Dosage: 100 MILLIGRAM
     Route: 065
  14. TPN [Concomitant]
     Active Substance: AMINO ACIDS\DEXTROSE\ELECTROLYTES NOS\SOYBEAN OIL
     Dosage: UNK
     Route: 065
  15. OMEPRAZOLE [Concomitant]
     Active Substance: OMEPRAZOLE
     Dosage: 20 MILLIGRAM
     Route: 065
  16. LOPERAMIDE [Concomitant]
     Active Substance: LOPERAMIDE
     Dosage: 2 MILLIGRAM
     Route: 065
  17. ATROPINE SULFATE\DIPHENOXYLATE HYDROCHLORIDE [Concomitant]
     Active Substance: ATROPINE SULFATE\DIPHENOXYLATE HYDROCHLORIDE
     Dosage: UNK
     Route: 065
  18. DESVENLAFAXINE SUCCINATE [Concomitant]
     Active Substance: DESVENLAFAXINE SUCCINATE
     Dosage: UNK
     Route: 065
  19. XARELTO [Concomitant]
     Active Substance: RIVAROXABAN
     Dosage: 15 MILLIGRAM
     Route: 065
  20. ESCITALOPRAM OXALATE [Concomitant]
     Active Substance: ESCITALOPRAM OXALATE
     Dosage: 100 PERCENT
     Route: 065
  21. AMINO ACIDS, SOURCE UNSPECIFIED [Concomitant]
     Active Substance: AMINO ACIDS, SOURCE UNSPECIFIED
     Dosage: 700 MILLIGRAM
     Route: 065
  22. ATROPINE\DIPHENOXYLATE [Concomitant]
     Active Substance: ATROPINE\DIPHENOXYLATE
     Dosage: UNK

REACTIONS (5)
  - Pneumonia [Unknown]
  - Fungal infection [Unknown]
  - Product availability issue [Unknown]
  - Off label use [Unknown]
  - Product dose omission issue [Unknown]
